FAERS Safety Report 4895896-3 (Version None)
Quarter: 2005Q4

REPORT INFORMATION
  Report Type: 
  Country: None (occurrence: None)
  Receive Date: 20051221
  Receipt Date: 20051021
  Transmission Date: 20060501
  Serious: Yes (Hospitalization)
  Sender: FDA-Public Use
  Company Number: US152110

PATIENT
  Age: 14 Year
  Sex: Male
  Weight: 70.8 kg

DRUGS (8)
  1. SENSIPAR [Suspect]
     Indication: HYPERPARATHYROIDISM SECONDARY
     Dosage: 30 MG, 1 IN 1 DAYS, PO
     Route: 048
     Dates: start: 20050810
  2. CALCITRIOL [Concomitant]
  3. SEVELAMER HCL [Concomitant]
  4. PRAVASTATIN SODIUM [Concomitant]
  5. IRON SULFATETHIAMIN COMPOUND TAB [Concomitant]
  6. SODIUM BICARBONATE [Concomitant]
  7. EPOGEN [Concomitant]
  8. NEPHRO-CAPS [Concomitant]

REACTIONS (2)
  - CONVULSION [None]
  - HYPOCALCAEMIA [None]
